FAERS Safety Report 7075044-4 (Version None)
Quarter: 2010Q4

REPORT INFORMATION
  Report Type: 
  Country: None (occurrence: None)
  Receive Date: 20101029
  Receipt Date: 20100408
  Transmission Date: 20110411
  Serious: No
  Sender: FDA-Public Use
  Company Number: US-WYE-H14406710

PATIENT
  Age: 76 Year
  Sex: Female

DRUGS (8)
  1. ALAVERT [Suspect]
     Indication: NASAL CONGESTION
     Dosage: 1 TABLET AS NEEDED
     Route: 048
     Dates: start: 20080101, end: 20100325
  2. ALAVERT [Suspect]
     Indication: SNEEZING
  3. ALAVERT [Suspect]
     Indication: RHINORRHOEA
  4. SPIRONOLACTONE [Concomitant]
  5. CRESTOR [Concomitant]
  6. DIOVAN [Concomitant]
  7. ASACOL [Concomitant]
  8. MERCAPTOPURINE [Concomitant]

REACTIONS (1)
  - DRUG EFFECT DECREASED [None]
